FAERS Safety Report 4358479-X (Version None)
Quarter: 2004Q2

REPORT INFORMATION
  Report Type: 
  Country: None (occurrence: None)
  Receive Date: 20040514
  Receipt Date: 20040426
  Transmission Date: 20050107
  Serious: Yes (Death, Hospitalization)
  Sender: FDA-Public Use
  Company Number: MX-BRISTOL-MYERS SQUIBB COMPANY-12570388

PATIENT
  Age: 56 Year
  Sex: Female

DRUGS (7)
  1. CISPLATIN [Suspect]
     Indication: OVARIAN CANCER
     Route: 042
     Dates: start: 20040322, end: 20040322
  2. INTERFERON GAMMA [Suspect]
     Indication: OVARIAN CANCER
     Dosage: INITIAL DOSE ON 16-DEC-2003 CYCLE 3 GIVEN ON 13-FEB-2004
     Route: 058
     Dates: start: 20040303, end: 20040303
  3. CARBOPLATIN [Concomitant]
     Indication: OVARIAN CANCER
     Dates: start: 20031215, end: 20040213
  4. PACLITAXEL [Concomitant]
     Indication: OVARIAN CANCER
     Dates: start: 20031215, end: 20040213
  5. DOXORUBICIN HCL [Concomitant]
     Indication: OVARIAN CANCER
     Dates: start: 20040322, end: 20040322
  6. CYCLOPHOSPHAMIDE [Concomitant]
     Indication: OVARIAN CANCER
     Dates: start: 20040322, end: 20040322
  7. CLOPIDOGREL BISULFATE [Concomitant]
     Dates: start: 20031201, end: 20040403

REACTIONS (2)
  - ACUTE RESPIRATORY FAILURE [None]
  - RENAL FAILURE [None]
